FAERS Safety Report 13981052 (Version 1)
Quarter: 2017Q3

REPORT INFORMATION
  Report Type: Spontaneous
  Country: US (occurrence: US)
  Receive Date: 20170918
  Receipt Date: 20170918
  Transmission Date: 20171128
  Serious: Yes (Other)
  Sender: FDA-Public Use
  Company Number: US-TEVA-692541USA

PATIENT
  Age: 45 Year
  Sex: Female

DRUGS (1)
  1. BUPROPION HYDROCHLORDE [Suspect]
     Active Substance: BUPROPION HYDROCHLORIDE
     Indication: MAJOR DEPRESSION
     Dates: start: 20160728

REACTIONS (6)
  - Irritability [Unknown]
  - Depression [Unknown]
  - Product substitution issue [Unknown]
  - Drug ineffective [Unknown]
  - Mood altered [Unknown]
  - Abnormal behaviour [Unknown]

NARRATIVE: CASE EVENT DATE: 2016
